FAERS Safety Report 4911789-7 (Version None)
Quarter: 2006Q1

REPORT INFORMATION
  Report Type: 
  Country: None (occurrence: None)
  Receive Date: 20060213
  Receipt Date: 20060213
  Transmission Date: 20060701
  Serious: Yes (Hospitalization)
  Sender: FDA-Public Use
  Company Number: None

PATIENT
  Sex: Male
  Weight: 89 kg

DRUGS (4)
  1. FLUOROURACIL [Suspect]
     Indication: OESOPHAGEAL CARCINOMA
     Dosage: 23382 MG
     Dates: start: 20050810, end: 20051104
  2. CISPLATIN [Suspect]
     Dosage: 469.5 MG
     Dates: start: 20050810, end: 20051007
  3. TAXOL [Suspect]
     Dosage: 834 MG
     Dates: start: 20050810, end: 20050907
  4. PEGFILGRASTIM (NEULASTA) [Suspect]
     Dosage: 12 MG
     Dates: start: 20050815, end: 20050912

REACTIONS (3)
  - PYREXIA [None]
  - RESPIRATORY DISTRESS [None]
  - WOUND DRAINAGE [None]
